FAERS Safety Report 5248724-0 (Version None)
Quarter: 2007Q1

REPORT INFORMATION
  Report Type: 
  Country: None (occurrence: None)
  Receive Date: 20070222
  Receipt Date: 20070208
  Transmission Date: 20070707
  Serious: Yes (Hospitalization)
  Sender: FDA-Public Use
  Company Number: 235793

PATIENT
  Age: 65 Year
  Sex: Female

DRUGS (13)
  1. RITUXAN [Suspect]
     Indication: SCLERODERMA
     Dosage: 1000 MG, INTRAVENOUS
     Route: 042
     Dates: start: 20070108
  2. FOSAMAX PLUS D (ALENDRONATE SODIUM CHOLECALCIFEROL) [Concomitant]
  3. ASCORBIC ACID [Concomitant]
  4. CALCIUM CARBONATE (CALCIUM CARBONATE) [Concomitant]
  5. MULTIVITAMIN (MULTIVITAMINS NOS) [Concomitant]
  6. FERROUS SULFATE TAB [Concomitant]
  7. AVAPRO [Concomitant]
  8. NIFEDIPINE ER (NIFEDIPINE) [Concomitant]
  9. OMEPRAZOLE [Concomitant]
  10. POTASSIUM CHLORIDE [Concomitant]
  11. PREDNISONE TAB [Concomitant]
  12. BACTRIM DS [Concomitant]
  13. IBUPROFEN [Concomitant]

REACTIONS (1)
  - SMALL INTESTINAL OBSTRUCTION [None]
